FAERS Safety Report 25123681 (Version 1)
Quarter: 2025Q1

REPORT INFORMATION
  Report Type: Spontaneous
  Country: US (occurrence: US)
  Receive Date: 20250326
  Receipt Date: 20250326
  Transmission Date: 20250408
  Serious: Yes (Hospitalization)
  Sender: MYLAN
  Company Number: US-MYLANLABS-2025M1025548

PATIENT
  Age: 55 Year
  Sex: Female

DRUGS (14)
  1. BUSPIRONE [Suspect]
     Active Substance: BUSPIRONE HYDROCHLORIDE
     Indication: Anxiety
     Dosage: 10 MILLIGRAM, TID
  2. METOPROLOL [Suspect]
     Active Substance: METOPROLOL
     Indication: Hypertension
  3. METOPROLOL [Suspect]
     Active Substance: METOPROLOL
     Indication: Hypertensive urgency
  4. METOPROLOL [Suspect]
     Active Substance: METOPROLOL
     Indication: Secondary hypertension
  5. CLONIDINE [Suspect]
     Active Substance: CLONIDINE
     Indication: Hypertension
     Dosage: 0.1 MILLIGRAM, BID
  6. CLONIDINE [Suspect]
     Active Substance: CLONIDINE
     Indication: Hypertensive urgency
  7. CLONIDINE [Suspect]
     Active Substance: CLONIDINE
     Indication: Secondary hypertension
  8. LISINOPRIL [Suspect]
     Active Substance: LISINOPRIL
     Indication: Hypertension
     Dosage: 40 MILLIGRAM, QD
  9. LISINOPRIL [Suspect]
     Active Substance: LISINOPRIL
     Indication: Hypertensive urgency
  10. LISINOPRIL [Suspect]
     Active Substance: LISINOPRIL
     Indication: Secondary hypertension
  11. CARVEDILOL [Suspect]
     Active Substance: CARVEDILOL
     Indication: Hypertensive urgency
  12. CARVEDILOL [Suspect]
     Active Substance: CARVEDILOL
     Indication: Secondary hypertension
  13. HYDRALAZINE [Concomitant]
     Active Substance: HYDRALAZINE HYDROCHLORIDE
     Indication: Hypertensive urgency
  14. HYDRALAZINE [Concomitant]
     Active Substance: HYDRALAZINE HYDROCHLORIDE
     Indication: Secondary hypertension

REACTIONS (3)
  - Secondary hypertension [Recovering/Resolving]
  - Hypertensive urgency [Recovering/Resolving]
  - Drug ineffective [Unknown]
